FAERS Safety Report 8826262 (Version 3)
Quarter: 2013Q1

REPORT INFORMATION
  Report Type: Spontaneous
  Country: US (occurrence: US)
  Receive Date: 20121005
  Receipt Date: 20130211
  Transmission Date: 20140127
  Serious: Yes (Hospitalization, Disabling, Other)
  Sender: FDA-Public Use
  Company Number: US-JNJFOC-20120911689

PATIENT
  Sex: Female
  Weight: 51.71 kg

DRUGS (9)
  1. REMICADE [Suspect]
     Indication: RHEUMATOID ARTHRITIS
     Route: 042
     Dates: start: 201112, end: 20120312
  2. REMICADE [Suspect]
     Indication: RHEUMATOID ARTHRITIS
     Route: 042
     Dates: start: 2005, end: 201105
  3. ORENCIA [Suspect]
     Indication: RHEUMATOID ARTHRITIS
     Route: 042
     Dates: start: 201105, end: 201112
  4. METHOTREXATE [Suspect]
     Indication: RHEUMATOID ARTHRITIS
     Dosage: START DATE: PRIOR TO 2009
     Route: 030
     Dates: start: 2005, end: 201203
  5. CLARITIN [Concomitant]
     Indication: HYPERSENSITIVITY
     Route: 065
  6. XANAX [Concomitant]
     Indication: ANXIETY
     Route: 065
  7. VICODIN [Concomitant]
     Route: 048
  8. METHOTREXATE [Concomitant]
     Indication: RHEUMATOID ARTHRITIS
     Route: 065
  9. PROAIR HFA [Concomitant]
     Route: 065

REACTIONS (2)
  - Hodgkin^s disease [Recovering/Resolving]
  - Rheumatoid arthritis [Recovering/Resolving]
